FAERS Safety Report 18895259 (Version 1)
Quarter: 2021Q1

REPORT INFORMATION
  Report Type: Spontaneous
  Country: US (occurrence: US)
  Receive Date: 20210216
  Receipt Date: 20210216
  Transmission Date: 20210420
  Serious: No
  Sender: FDA-Public Use
  Company Number: US-SA-2021SA051364

PATIENT
  Age: 37 Year
  Sex: Female

DRUGS (2)
  1. DUPIXENT [Suspect]
     Active Substance: DUPILUMAB
     Indication: DERMATITIS ATOPIC
     Dosage: 600 MG, 1X
     Route: 058
     Dates: start: 20200124, end: 20200124
  2. DUPIXENT [Suspect]
     Active Substance: DUPILUMAB
     Dosage: 300 MG, QOW
     Dates: start: 2020

REACTIONS (3)
  - Dizziness [Recovered/Resolved]
  - Injection site bruising [Unknown]
  - Eye pruritus [Unknown]

NARRATIVE: CASE EVENT DATE: 202001
